FAERS Safety Report 9165579 (Version 2)
Quarter: 2013Q1

REPORT INFORMATION
  Report Type: Spontaneous
  Country: FR (occurrence: FR)
  Receive Date: 20130315
  Receipt Date: 20130327
  Transmission Date: 20140127
  Serious: Yes (Death)
  Sender: FDA-Public Use
  Company Number: FR-SANOFI-AVENTIS-2013SA024620

PATIENT
  Age: 92 Year
  Sex: Female

DRUGS (2)
  1. LOVENOX [Suspect]
     Indication: ARRHYTHMIA
     Route: 058
     Dates: start: 20130128, end: 20130212
  2. CORDARONE [Concomitant]
     Indication: ATRIAL FIBRILLATION
     Route: 048
     Dates: start: 20130128

REACTIONS (3)
  - Multi-organ failure [Fatal]
  - Shock haemorrhagic [Fatal]
  - Haematoma [Fatal]
